FAERS Safety Report 4652509-3 (Version None)
Quarter: 2005Q2

REPORT INFORMATION
  Report Type: 
  Country: None (occurrence: None)
  Receive Date: 20050502
  Receipt Date: 20050418
  Transmission Date: 20051028
  Serious: Yes (Hospitalization)
  Sender: FDA-Public Use
  Company Number: PHRM2005FR01139

PATIENT
  Age: 76 Year
  Sex: Female

DRUGS (2)
  1. VISUDYNE [Suspect]
     Indication: MACULAR DEGENERATION
     Dates: start: 20030626, end: 20030626
  2. MOPRAL [Concomitant]

REACTIONS (1)
  - ADRENOCORTICAL INSUFFICIENCY CHRONIC [None]
